FAERS Safety Report 6523857-7 (Version None)
Quarter: 2009Q4

REPORT INFORMATION
  Report Type: 
  Country: None (occurrence: None)
  Receive Date: 20091230
  Receipt Date: 20091230
  Transmission Date: 20100525
  Serious: Yes (Life-Threatening, Other)
  Sender: FDA-Public Use
  Company Number: None

PATIENT

DRUGS (2)
  1. ULTRAM [Suspect]
     Indication: FIBROMYALGIA
     Dosage: 2- 50 MG TABS Q 4-6 HRS PRN DAILY PRN BUCCAL
     Route: 002
     Dates: start: 20040224, end: 20091118
  2. ULTRAM [Suspect]
     Indication: OSTEOARTHRITIS
     Dosage: 2- 50 MG TABS Q 4-6 HRS PRN DAILY PRN BUCCAL
     Route: 002
     Dates: start: 20040224, end: 20091118

REACTIONS (17)
  - ANGER [None]
  - CRYING [None]
  - DECREASED APPETITE [None]
  - DRUG WITHDRAWAL SYNDROME [None]
  - FEAR [None]
  - FEELING ABNORMAL [None]
  - FORMICATION [None]
  - LIVER DISORDER [None]
  - MALAISE [None]
  - METABOLIC DISORDER [None]
  - NASOPHARYNGITIS [None]
  - NERVOUSNESS [None]
  - OVERDOSE [None]
  - PAIN [None]
  - PRURITUS [None]
  - SCREAMING [None]
  - THERAPEUTIC AGENT TOXICITY [None]
